FAERS Safety Report 7418936-6 (Version None)
Quarter: 2011Q2

REPORT INFORMATION
  Report Type: 
  Country: None (occurrence: None)
  Receive Date: 20110415
  Receipt Date: 20110412
  Transmission Date: 20111010
  Serious: Yes (Other)
  Sender: FDA-Public Use
  Company Number: US-AMGEN-USASP2011008226

PATIENT
  Sex: Male

DRUGS (2)
  1. NPLATE [Suspect]
     Indication: IDIOPATHIC THROMBOCYTOPENIC PURPURA
     Dosage: 12 A?G/KG, UNK
     Dates: start: 20100513, end: 20101210
  2. IMMUNOGLOBULINS [Concomitant]
     Dosage: UNK
     Dates: start: 20100303

REACTIONS (1)
  - THERAPEUTIC RESPONSE DECREASED [None]
